FAERS Safety Report 4518183-1 (Version None)
Quarter: 2004Q4

REPORT INFORMATION
  Report Type: 
  Country: None (occurrence: None)
  Receive Date: 20041130
  Receipt Date: 20041123
  Transmission Date: 20050328
  Serious: Yes (Hospitalization, Other)
  Sender: FDA-Public Use
  Company Number: HQWYE089514AUG03

PATIENT
  Age: 43 Year
  Sex: Female
  Weight: 48.58 kg

DRUGS (7)
  1. PREMPRO [Suspect]
     Indication: MENOPAUSE
     Dosage: 0.625MG/2.5MG, ORAL
     Route: 048
     Dates: start: 20000330, end: 20000830
  2. PREMPRO [Suspect]
     Indication: OSTEOPOROSIS
     Dosage: 0.625MG/2.5MG, ORAL
     Route: 048
     Dates: start: 20000330, end: 20000830
  3. PREMPRO [Suspect]
     Indication: PROPHYLAXIS
     Dosage: 0.625MG/2.5MG, ORAL
     Route: 048
     Dates: start: 20000330, end: 20000830
  4. PREMARIN [Suspect]
  5. CALCIUM (CALCIUM) [Concomitant]
  6. MULTIVITAMINS (ASCORBIC ACID/ERGOCALCIFEROL/FOLIC ACID/NICOTINAMIDE/PA [Concomitant]
  7. ACETYLSALICYLIC ACID SRT [Concomitant]

REACTIONS (8)
  - BREAST CANCER METASTATIC [None]
  - FIBROCYSTIC BREAST DISEASE [None]
  - HAEMATOCRIT DECREASED [None]
  - METASTASES TO LYMPH NODES [None]
  - OESTROGEN RECEPTOR ASSAY POSITIVE [None]
  - PLATELET COUNT INCREASED [None]
  - PROGESTERONE RECEPTOR ASSAY POSITIVE [None]
  - WHITE BLOOD CELL COUNT INCREASED [None]
